FAERS Safety Report 7187337-0 (Version None)
Quarter: 2010Q4

REPORT INFORMATION
  Report Type: 
  Country: None (occurrence: None)
  Receive Date: 20101222
  Receipt Date: 20100929
  Transmission Date: 20110411
  Serious: Yes (Life-Threatening, Other)
  Sender: FDA-Public Use
  Company Number: US-MERCK-1007USA03879

PATIENT
  Age: 39 Year
  Sex: Female
  Weight: 75 kg

DRUGS (2)
  1. SINGULAIR [Suspect]
     Indication: ASTHMA
     Route: 048
     Dates: start: 20091001, end: 20091018
  2. SINGULAIR [Suspect]
     Indication: TOTAL LUNG CAPACITY DECREASED
     Route: 048
     Dates: start: 20091001, end: 20091018

REACTIONS (11)
  - DECREASED APPETITE [None]
  - DIARRHOEA [None]
  - FEAR [None]
  - INFLUENZA [None]
  - INSOMNIA [None]
  - MENTAL DISORDER [None]
  - MOOD SWINGS [None]
  - MUSCLE SPASMS [None]
  - PALPITATIONS [None]
  - PARAESTHESIA [None]
  - PSYCHOMOTOR HYPERACTIVITY [None]
